FAERS Safety Report 6980419-5 (Version None)
Quarter: 2010Q3

REPORT INFORMATION
  Report Type: 
  Country: None (occurrence: None)
  Receive Date: 20100914
  Receipt Date: 20100505
  Transmission Date: 20110219
  Serious: No
  Sender: FDA-Public Use
  Company Number: US-ABBOTT-10P-163-0633926-00

PATIENT
  Age: 11 Year
  Sex: Female
  Weight: 40 kg

DRUGS (1)
  1. DEPAKOTE [Suspect]
     Indication: CONVULSION PROPHYLAXIS
     Dosage: 2250 MG DAILY
     Dates: start: 20090101, end: 20091201

REACTIONS (3)
  - ALOPECIA [None]
  - HAIR COLOUR CHANGES [None]
  - HAIR TEXTURE ABNORMAL [None]
